FAERS Safety Report 9329148 (Version 1)
Quarter: 2013Q2

REPORT INFORMATION
  Report Type: Spontaneous
  Country: US (occurrence: US)
  Receive Date: 20130604
  Receipt Date: 20130604
  Transmission Date: 20140414
  Serious: No
  Sender: FDA-Public Use
  Company Number: US-SANOFI-AVENTIS-2012SA073877

PATIENT
  Age: 73 Year
  Sex: Male

DRUGS (4)
  1. LANTUS SOLOSTAR [Suspect]
     Indication: TYPE 2 DIABETES MELLITUS
     Route: 058
     Dates: start: 2012
  2. SOLOSTAR [Suspect]
     Indication: TYPE 2 DIABETES MELLITUS
     Dates: start: 2012
  3. GLYBURIDE [Concomitant]
  4. METFORMIN [Concomitant]
     Dosage: 500 MG 5 TABLETS TWICE A DAY.

REACTIONS (3)
  - Chest pain [Unknown]
  - Injection site bruising [Unknown]
  - Blood glucose increased [Recovered/Resolved]
